FAERS Safety Report 23987067 (Version 6)
Quarter: 2025Q1

REPORT INFORMATION
  Report Type: Spontaneous
  Country: US (occurrence: US)
  Receive Date: 20240618
  Receipt Date: 20250103
  Transmission Date: 20250408
  Serious: No
  Sender: IPSEN BIOPHARMACEUTICALS, INC.
  Company Number: US-Albireo AB-2022ALB000319

PATIENT
  Age: 28 Year
  Sex: Male
  Weight: 59.7 kg

DRUGS (11)
  1. BYLVAY [Suspect]
     Active Substance: ODEVIXIBAT
     Indication: Biliary obstruction
     Dosage: TWICE DAILY
     Route: 048
     Dates: start: 20220719
  2. BYLVAY [Suspect]
     Active Substance: ODEVIXIBAT
     Indication: Progressive familial intrahepatic cholestasis
     Route: 048
     Dates: start: 20220720, end: 20221212
  3. BYLVAY [Suspect]
     Active Substance: ODEVIXIBAT
     Route: 048
     Dates: start: 20221218
  4. BYLVAY [Suspect]
     Active Substance: ODEVIXIBAT
     Dosage: 1200 MG (3 400 MCG CAPSULE ONCE DAILY)
     Route: 048
     Dates: start: 20240130
  5. PANTOPRAZOLE [Concomitant]
     Active Substance: PANTOPRAZOLE
  6. URSODIOL [Concomitant]
     Active Substance: URSODIOL
  7. NALTREXONE [Concomitant]
     Active Substance: NALTREXONE
  8. VITAMIN D3 [Concomitant]
     Active Substance: CHOLECALCIFEROL
  9. VITAMIN K1 [Concomitant]
     Active Substance: PHYTONADIONE
  10. OMEPRAZOLE [Concomitant]
     Active Substance: OMEPRAZOLE
  11. PANTOPRAZOLE SODIUM [Concomitant]
     Active Substance: PANTOPRAZOLE SODIUM

REACTIONS (12)
  - Diarrhoea [Recovered/Resolved]
  - Abdominal pain upper [Recovered/Resolved]
  - Nausea [Recovered/Resolved]
  - Stress at work [Unknown]
  - Pruritus [Unknown]
  - Jaundice [Unknown]
  - Attention deficit hyperactivity disorder [Unknown]
  - Gastrointestinal pain [Unknown]
  - Diarrhoea [Unknown]
  - Product dose omission issue [Unknown]
  - Intentional product misuse [Unknown]
  - Intentional dose omission [Unknown]
